FAERS Safety Report 4401049-5 (Version None)
Quarter: 2004Q3

REPORT INFORMATION
  Report Type: 
  Country: None (occurrence: None)
  Receive Date: 20040907
  Receipt Date: 20031008
  Transmission Date: 20050211
  Serious: No
  Sender: FDA-Public Use
  Company Number: US-BRISTOL-MYERS SQUIBB COMPANY-12405676

PATIENT
  Age: 63 Year
  Sex: Male
  Weight: 102 kg

DRUGS (12)
  1. COUMADIN [Suspect]
     Indication: CAROTID ARTERY OCCLUSION
     Dosage: DOSE VARIED. ORIGINAL: 5 MG 3D/WK + 7.5 MG 4D/WK; INCREASED TO 7.5 MG 5D/WK + 5 MG 2D/WK.
     Route: 048
  2. EFFEXOR [Concomitant]
     Dates: start: 20030626
  3. IBUPROFEN [Concomitant]
     Dosage: TAKEN FOR OVER 1 YEAR.
  4. GEMFIBROZIL [Concomitant]
     Dosage: TAKEN FOR OVER 1 YEAR.
  5. METFORMIN HCL [Concomitant]
     Dosage: 3 TABS (500 MG EACH) IN A.M. AND 2 TABS IN P.M, TAKEN FOR OVER 1 YEAR.
  6. PEPCID AC [Concomitant]
     Dosage: TAKEN FOR OVER 1 YEAR.
  7. VITAMIN C [Concomitant]
     Dosage: TAKEN FOR OVER 1 YEAR.
  8. LECITHIN [Concomitant]
     Dosage: TAKEN FOR OVER 1 YEAR.
  9. GLUCOSAMINE+CHONDROITIN+MSM [Concomitant]
     Dosage: TAKEN FOR OVER 1 YEAR.
  10. MULTI-VITAMIN [Concomitant]
     Dosage: TAKEN FOR OVER 1 YEAR.
  11. AVANDIA [Concomitant]
     Dates: start: 20030501
  12. METAMUCIL-2 [Concomitant]
     Dosage: 3-4 WEEKS.

REACTIONS (1)
  - INTERNATIONAL NORMALISED RATIO DECREASED [None]
